FAERS Safety Report 23607762 (Version 1)
Quarter: 2024Q1

REPORT INFORMATION
  Report Type: Report from Study
  Country: US (occurrence: US)
  Receive Date: 20240307
  Receipt Date: 20240307
  Transmission Date: 20240410
  Serious: Yes (Other)
  Sender: FDA-Public Use
  Company Number: US-GILEAD-2023-0614550

PATIENT
  Age: 68 Year
  Sex: Female

DRUGS (23)
  1. AMBRISENTAN [Suspect]
     Active Substance: AMBRISENTAN
     Indication: Pulmonary arterial hypertension
     Dosage: 5 MG, QD
     Route: 065
  2. AMBRISENTAN [Suspect]
     Active Substance: AMBRISENTAN
     Dosage: 10 MG, QD
     Route: 065
     Dates: start: 20221229
  3. METFORMIN [Concomitant]
     Active Substance: METFORMIN HYDROCHLORIDE
  4. OMEPRAZOLE [Concomitant]
     Active Substance: OMEPRAZOLE
  5. CIMETIDINE [Concomitant]
     Active Substance: CIMETIDINE
  6. FERROUS FUMARATE\FOLIC ACID\VITAMIN B COMPLEX [Concomitant]
     Active Substance: FERROUS FUMARATE\FOLIC ACID\VITAMIN B COMPLEX
  7. GABAPENTIN [Concomitant]
     Active Substance: GABAPENTIN
  8. TRIAMTERENE AND HYDROCHLOROTHIAZIDE [Concomitant]
     Active Substance: HYDROCHLOROTHIAZIDE\TRIAMTERENE
  9. TIZANIDINE [Concomitant]
     Active Substance: TIZANIDINE
  10. LORATADINE [Concomitant]
     Active Substance: LORATADINE
  11. MELATONIN [Concomitant]
     Active Substance: MELATONIN
  12. LEVOTHYROXINE [Concomitant]
     Active Substance: LEVOTHYROXINE\LEVOTHYROXINE SODIUM
  13. SINGULAIR [Concomitant]
     Active Substance: MONTELUKAST SODIUM
  14. FLOMAX [Concomitant]
     Active Substance: TAMSULOSIN HYDROCHLORIDE
  15. WELLBUTRIN [Concomitant]
     Active Substance: BUPROPION HYDROCHLORIDE
  16. METHADONE [Concomitant]
     Active Substance: METHADONE HYDROCHLORIDE
  17. NEBIVOLOL [Concomitant]
     Active Substance: NEBIVOLOL
  18. DIPHENHYDRAMINE [Concomitant]
     Active Substance: DIPHENHYDRAMINE
  19. CHOLECALCIFEROL [Concomitant]
     Active Substance: CHOLECALCIFEROL
  20. MAGNESIUM [Concomitant]
     Active Substance: MAGNESIUM
  21. COENZYME Q10 [Concomitant]
     Active Substance: DIETARY SUPPLEMENT\UBIDECARENONE
  22. GLUCOSAMINE [Concomitant]
     Active Substance: GLUCOSAMINE
  23. BEANO [Concomitant]
     Active Substance: ASPERGILLUS NIGER .ALPHA.-GALACTOSIDASE

REACTIONS (6)
  - Critical illness [Unknown]
  - Haemangioma [Not Recovered/Not Resolved]
  - Cough [Unknown]
  - Wheezing [Unknown]
  - Cold-stimulus headache [Unknown]
  - Asthenia [Unknown]

NARRATIVE: CASE EVENT DATE: 20230101
